FAERS Safety Report 9799798 (Version 3)
Quarter: 2015Q3

REPORT INFORMATION
  Report Type: Spontaneous
  Country: US (occurrence: US)
  Receive Date: 20140106
  Receipt Date: 20150807
  Transmission Date: 20151125
  Serious: Yes (Hospitalization)
  Sender: FDA-Public Use
  Company Number: US-GILEAD-2010-0034398

PATIENT
  Age: 43 Year
  Sex: Female

DRUGS (2)
  1. LETAIRIS [Suspect]
     Active Substance: AMBRISENTAN
     Indication: PULMONARY ARTERIAL HYPERTENSION
     Route: 048
     Dates: start: 20091125, end: 20101105
  2. AZATHIOPRINE. [Concomitant]
     Active Substance: AZATHIOPRINE
     Indication: RHEUMATOID ARTHRITIS

REACTIONS (2)
  - Liver function test abnormal [Unknown]
  - Fluid retention [Unknown]
